FAERS Safety Report 12575885 (Version 2)
Quarter: 2016Q3

REPORT INFORMATION
  Report Type: Spontaneous
  Country: US (occurrence: US)
  Receive Date: 20160720
  Receipt Date: 20160818
  Transmission Date: 20161109
  Serious: No
  Sender: FDA-Public Use
  Company Number: US-B.I. PHARMACEUTICALS,INC./RIDGEFIELD-2016-BI-43033BP

PATIENT
  Age: 79 Year
  Sex: Female
  Weight: 56.18 kg

DRUGS (2)
  1. PRADAXA [Suspect]
     Active Substance: DABIGATRAN ETEXILATE MESYLATE
     Indication: PROPHYLAXIS
  2. PRADAXA [Suspect]
     Active Substance: DABIGATRAN ETEXILATE MESYLATE
     Indication: ATRIAL FIBRILLATION
     Route: 048
     Dates: start: 20160609

REACTIONS (5)
  - Chest discomfort [Unknown]
  - Abdominal discomfort [Recovered/Resolved]
  - Dyspepsia [Unknown]
  - Abdominal pain upper [Unknown]
  - Dysphagia [Unknown]

NARRATIVE: CASE EVENT DATE: 20160609
